FAERS Safety Report 22305138 (Version 1)
Quarter: 2023Q2

REPORT INFORMATION
  Report Type: Spontaneous
  Country: US (occurrence: None)
  Receive Date: 20230509
  Receipt Date: 20230509
  Transmission Date: 20230722
  Serious: Yes (Death)
  Sender: FDA-Public Use
  Company Number: None

PATIENT
  Age: 76 Year
  Sex: Male

DRUGS (18)
  1. VELTASSA [Suspect]
     Active Substance: PATIROMER
     Indication: Hyperkalaemia
     Dosage: OTHER QUANTITY : 8.4GM;?FREQUENCY : DAILY;?
     Route: 048
     Dates: start: 20200106, end: 20230428
  2. MEVACOR [Concomitant]
     Active Substance: LOVASTATIN
  3. ADVAIR DISKUS [Concomitant]
     Active Substance: FLUTICASONE PROPIONATE\SALMETEROL XINAFOATE
  4. ANTIVERT [Concomitant]
     Active Substance: MECLIZINE HYDROCHLORIDE
  5. ASPIRIN EC LOW DOSE [Concomitant]
  6. BETAMETHASONE DIP CRM [Concomitant]
  7. CO-Q10 SOFTGEL CAPS [Concomitant]
  8. COMBIVENT RESPIMAT SPRAY [Concomitant]
  9. DALIRESP [Concomitant]
     Active Substance: ROFLUMILAST
  10. FERROUS SULFATE [Concomitant]
     Active Substance: FERROUS SULFATE
  11. FIBER [Concomitant]
  12. FISH OIL [Concomitant]
     Active Substance: FISH OIL
  13. HYDROCHLOROTHIAZIDE [Concomitant]
     Active Substance: HYDROCHLOROTHIAZIDE
  14. INCRUSE ELLIPTA [Concomitant]
     Active Substance: UMECLIDINIUM BROMIDE
  15. LISINOPRIL [Concomitant]
     Active Substance: LISINOPRIL
  16. SPIRIVA RESPIMAT [Concomitant]
     Active Substance: TIOTROPIUM BROMIDE
  17. SYNTHROID [Concomitant]
     Active Substance: LEVOTHYROXINE SODIUM
  18. ZOFRAN [Concomitant]
     Active Substance: ONDANSETRON HYDROCHLORIDE

REACTIONS (1)
  - Death [None]

NARRATIVE: CASE EVENT DATE: 20230428
